FAERS Safety Report 5491748-9 (Version None)
Quarter: 2007Q4

REPORT INFORMATION
  Report Type: 
  Country: None (occurrence: None)
  Receive Date: 20071022
  Receipt Date: 20071015
  Transmission Date: 20080405
  Serious: Yes (Death)
  Sender: FDA-Public Use
  Company Number: JP-BRISTOL-MYERS SQUIBB COMPANY-13944327

PATIENT
  Age: 28 Year
  Sex: Female

DRUGS (6)
  1. VEPESID [Suspect]
     Indication: ACUTE LYMPHOCYTIC LEUKAEMIA
     Route: 041
  2. ENDOXAN [Suspect]
  3. ADRIAMYCIN PFS [Concomitant]
     Route: 042
  4. DAUNOMYCIN [Concomitant]
     Route: 042
  5. ONCOVIN [Concomitant]
     Route: 042
  6. CYTARABINE [Concomitant]
     Route: 042

REACTIONS (2)
  - ACUTE MYELOID LEUKAEMIA [None]
  - PNEUMONIA [None]
